FAERS Safety Report 5247332-5 (Version None)
Quarter: 2007Q1

REPORT INFORMATION
  Report Type: 
  Country: None (occurrence: None)
  Receive Date: 20070223
  Receipt Date: 20070223
  Transmission Date: 20070707
  Serious: Yes (Other)
  Sender: FDA-Public Use
  Company Number: None

PATIENT
  Age: 47 Year
  Sex: Male

DRUGS (2)
  1. ONDANSETRON [Suspect]
     Indication: NAUSEA
     Dosage: 4 MG  ONCE IV BOLUS
     Route: 042
     Dates: start: 20070215
  2. MORPHINE [Suspect]
     Indication: PAIN
     Dosage: 3 MG Q 5 MIN X 2 IV BOLUS
     Route: 040
     Dates: start: 20070215

REACTIONS (7)
  - ASTHENIA [None]
  - HYPOAESTHESIA [None]
  - HYPOTONIA [None]
  - MOVEMENT DISORDER [None]
  - NAUSEA [None]
  - POST PROCEDURAL COMPLICATION [None]
  - SENSORY LOSS [None]
